FAERS Safety Report 6998814-7 (Version None)
Quarter: 2010Q3

REPORT INFORMATION
  Report Type: 
  Country: None (occurrence: None)
  Receive Date: 20100920
  Receipt Date: 20100602
  Transmission Date: 20110219
  Serious: Yes (Other)
  Sender: FDA-Public Use
  Company Number: US-ASTRAZENECA-2007UW02145

PATIENT
  Age: 33 Year
  Sex: Female
  Weight: 117 kg

DRUGS (22)
  1. SEROQUEL [Suspect]
     Indication: SCHIZOAFFECTIVE DISORDER
     Route: 048
     Dates: start: 19970101
  2. SEROQUEL [Suspect]
     Indication: SCHIZOPHRENIA
     Route: 048
     Dates: start: 19970101
  3. SEROQUEL [Suspect]
     Indication: BIPOLAR DISORDER
     Route: 048
     Dates: start: 19970101
  4. SEROQUEL [Suspect]
     Indication: SCHIZOPHRENIA, PARANOID TYPE
     Route: 048
     Dates: start: 19970101
  5. SEROQUEL [Suspect]
     Indication: DEPRESSION
     Route: 048
     Dates: start: 19970101
  6. SEROQUEL [Suspect]
     Route: 048
     Dates: start: 20000101
  7. SEROQUEL [Suspect]
     Route: 048
     Dates: start: 20000101
  8. SEROQUEL [Suspect]
     Route: 048
     Dates: start: 20000101
  9. SEROQUEL [Suspect]
     Route: 048
     Dates: start: 20000101
  10. SEROQUEL [Suspect]
     Route: 048
     Dates: start: 20000101
  11. THORAZINE [Concomitant]
     Dosage: 100 MG MORN,200 MG NIGHT
     Dates: start: 20000101, end: 20020101
  12. DEPAKOTE [Concomitant]
     Indication: SCHIZOPHRENIA
  13. DEPAKOTE [Concomitant]
     Indication: BIPOLAR DISORDER
  14. DEPAKOTE [Concomitant]
     Indication: DEPRESSION
  15. DEPAKOTE [Concomitant]
     Indication: SCHIZOPHRENIA, PARANOID TYPE
  16. CLOZARIL [Concomitant]
     Dosage: 40 MG FOR A/B 7 MTHS
     Dates: start: 20030101
  17. GEODON [Concomitant]
     Dates: start: 20070101, end: 20090101
  18. RISPERDAL [Concomitant]
     Dosage: DONT RECALL DOSAGE FOR A/B 3 MONTHS
     Dates: start: 20070101
  19. COLONOPIN [Concomitant]
     Indication: SCHIZOPHRENIA
     Dosage: DONT RECALL DOSAGE FOR A/B 3 MONTHS
     Dates: start: 20070101
  20. COLONOPIN [Concomitant]
     Indication: BIPOLAR DISORDER
     Dosage: DONT RECALL DOSAGE FOR A/B 3 MONTHS
     Dates: start: 20070101
  21. COLONOPIN [Concomitant]
     Indication: DEPRESSION
     Dosage: DONT RECALL DOSAGE FOR A/B 3 MONTHS
     Dates: start: 20070101
  22. COLONOPIN [Concomitant]
     Indication: SCHIZOPHRENIA, PARANOID TYPE
     Dosage: DONT RECALL DOSAGE FOR A/B 3 MONTHS
     Dates: start: 20070101

REACTIONS (4)
  - OBESITY [None]
  - PANCREATITIS [None]
  - TYPE 2 DIABETES MELLITUS [None]
  - WEIGHT INCREASED [None]
